FAERS Safety Report 4720615-0 (Version None)
Quarter: 2005Q3

REPORT INFORMATION
  Report Type: 
  Country: None (occurrence: None)
  Receive Date: 20050718
  Receipt Date: 20050718
  Transmission Date: 20060218
  Serious: Yes (Other)
  Sender: FDA-Public Use
  Company Number: None

PATIENT
  Sex: Female
  Weight: 80.63 kg

DRUGS (4)
  1. ARSENIC TRIOXIDE [Suspect]
     Indication: ACUTE PROMYELOCYTIC LEUKAEMIA
     Dosage: SEE IMAGE
     Dates: start: 20050322
  2. ALL-TRANSRETINOIC ACID [Suspect]
     Dosage: SEE IMAGE
     Route: 048
     Dates: start: 20050322, end: 20050329
  3. DAUNOMYCIN [Suspect]
     Dosage: SEE IMAGE
     Route: 040
     Dates: start: 20050322, end: 20050325
  4. CYTARABINE [Suspect]
     Dosage: SEE IMAGE
     Route: 042
     Dates: start: 20050322

REACTIONS (15)
  - BLOOD CULTURE POSITIVE [None]
  - BLOOD PRESSURE DECREASED [None]
  - BLOODY DISCHARGE [None]
  - CARDIAC TAMPONADE [None]
  - CATHETER SITE PAIN [None]
  - CHEST PAIN [None]
  - HAEMOGLOBIN DECREASED [None]
  - HEPATIC HAEMATOMA [None]
  - HEPATIC TRAUMA [None]
  - PERICARDIAL EFFUSION [None]
  - PLEURAL EFFUSION [None]
  - PYREXIA [None]
  - RASH [None]
  - RETINOIC ACID SYNDROME [None]
  - STAPHYLOCOCCAL INFECTION [None]
